FAERS Safety Report 9507566 (Version 2)
Quarter: 2013Q4

REPORT INFORMATION
  Report Type: Spontaneous
  Country: US (occurrence: US)
  Receive Date: 20130909
  Receipt Date: 20131108
  Transmission Date: 20140711
  Serious: Yes (Life-Threatening, Hospitalization, Other)
  Sender: FDA-Public Use
  Company Number: US-009507513-1309USA002164

PATIENT
  Age: 36 Year
  Sex: Female
  Weight: 69.3 kg

DRUGS (8)
  1. NUVARING [Suspect]
     Indication: CONTRACEPTION
     Dosage: 1 RING, EVERY THREE WEEKS
     Route: 067
     Dates: end: 2013
  2. OMEPRAZOLE [Concomitant]
     Indication: GASTROOESOPHAGEAL REFLUX DISEASE
     Dosage: UNK DF, UNK
     Route: 048
  3. VALACYCLOVIR HYDROCHLORIDE [Concomitant]
     Indication: HERPES SIMPLEX
     Dosage: UNK, BID
     Route: 048
  4. CLOBETASOL PROPIONATE [Concomitant]
     Indication: PSORIASIS
     Dosage: BID, SPARINGLY
     Route: 061
  5. VECTICAL [Concomitant]
     Indication: PSORIASIS
     Dosage: UNK, BID
     Route: 061
  6. MAXALT [Concomitant]
     Indication: MIGRAINE
     Dosage: UNK UNK, ONCE
     Route: 048
  7. EXCEDRIN (ACETAMINOPHEN (+) ASPIRIN (+) CAFFEINE) [Concomitant]
     Indication: MIGRAINE
     Dosage: 2 TAB ONCE, PRN
     Route: 048
  8. LEXAPRO [Concomitant]
     Indication: DEPRESSION
     Dosage: UNK, ONCE
     Route: 048

REACTIONS (2)
  - Pulmonary embolism [Recovered/Resolved]
  - Thrombosis [Recovered/Resolved]
